FAERS Safety Report 8031383-1 (Version None)
Quarter: 2012Q1

REPORT INFORMATION
  Report Type: 
  Country: None (occurrence: None)
  Receive Date: 20120109
  Receipt Date: 20120105
  Transmission Date: 20120608
  Serious: Yes (Disabling)
  Sender: FDA-Public Use
  Company Number: DK-BAYER-201029910GPV

PATIENT
  Age: 47 Year
  Sex: Female

DRUGS (3)
  1. MAGNEVIST [Suspect]
     Indication: NUCLEAR MAGNETIC RESONANCE IMAGING
     Dosage: 469 MG/ML
     Route: 042
     Dates: start: 20020110, end: 20020110
  2. DOTAREM [Concomitant]
     Indication: NUCLEAR MAGNETIC RESONANCE IMAGING ABDOMINAL
     Dosage: 279.3 MG/ML
     Route: 042
     Dates: start: 20040803
  3. DOTAREM [Concomitant]
     Indication: NUCLEAR MAGNETIC RESONANCE IMAGING
     Dosage: UNK
     Dates: start: 20050101

REACTIONS (9)
  - PRURITUS [None]
  - MUSCULOSKELETAL DISCOMFORT [None]
  - SKIN HYPERTROPHY [None]
  - MYALGIA [None]
  - MUSCLE SWELLING [None]
  - INDURATION [None]
  - PAIN [None]
  - NEPHROGENIC SYSTEMIC FIBROSIS [None]
  - MUSCULAR WEAKNESS [None]
